FAERS Safety Report 24443842 (Version 2)
Quarter: 2024Q4

REPORT INFORMATION
  Report Type: Report from Study
  Country: CA (occurrence: CA)
  Receive Date: 20241016
  Receipt Date: 20241017
  Transmission Date: 20250114
  Serious: No
  Sender: ROCHE
  Company Number: CA-ROCHE-2181831

PATIENT
  Age: 75 Year
  Sex: Female

DRUGS (37)
  1. RITUXAN [Suspect]
     Active Substance: RITUXIMAB
     Indication: Rheumatoid arthritis
     Dosage: FREQUENCY TEXT:DAY1,15
     Route: 042
     Dates: start: 20180823
  2. RITUXAN [Suspect]
     Active Substance: RITUXIMAB
     Route: 042
     Dates: start: 20140319
  3. RITUXAN [Suspect]
     Active Substance: RITUXIMAB
     Route: 042
     Dates: start: 20140613
  4. RITUXAN [Suspect]
     Active Substance: RITUXIMAB
     Route: 042
     Dates: start: 20140813
  5. RITUXAN [Suspect]
     Active Substance: RITUXIMAB
     Route: 042
     Dates: start: 20141105
  6. RITUXAN [Suspect]
     Active Substance: RITUXIMAB
     Route: 042
     Dates: start: 20141203
  7. RITUXAN [Suspect]
     Active Substance: RITUXIMAB
     Route: 042
     Dates: start: 20150325
  8. RITUXAN [Suspect]
     Active Substance: RITUXIMAB
     Route: 042
     Dates: start: 20150425
  9. RITUXAN [Suspect]
     Active Substance: RITUXIMAB
     Route: 042
     Dates: start: 20150525
  10. RITUXAN [Suspect]
     Active Substance: RITUXIMAB
     Route: 042
     Dates: start: 20150626
  11. RITUXAN [Suspect]
     Active Substance: RITUXIMAB
     Route: 042
     Dates: start: 20150724
  12. RITUXAN [Suspect]
     Active Substance: RITUXIMAB
     Route: 042
     Dates: start: 20151001
  13. RITUXAN [Suspect]
     Active Substance: RITUXIMAB
     Route: 042
     Dates: start: 20161203
  14. RITUXAN [Suspect]
     Active Substance: RITUXIMAB
     Route: 042
     Dates: start: 20160104
  15. RITUXAN [Suspect]
     Active Substance: RITUXIMAB
     Route: 042
     Dates: start: 20160304
  16. RITUXAN [Suspect]
     Active Substance: RITUXIMAB
     Route: 042
     Dates: start: 20160527
  17. RITUXAN [Suspect]
     Active Substance: RITUXIMAB
     Route: 042
     Dates: start: 20160825
  18. RITUXAN [Suspect]
     Active Substance: RITUXIMAB
     Route: 042
     Dates: start: 20160923
  19. RITUXAN [Suspect]
     Active Substance: RITUXIMAB
     Route: 042
     Dates: start: 20161214
  20. RITUXAN [Suspect]
     Active Substance: RITUXIMAB
     Route: 042
     Dates: start: 20170112
  21. RITUXAN [Suspect]
     Active Substance: RITUXIMAB
     Route: 042
     Dates: start: 20170516
  22. RITUXAN [Suspect]
     Active Substance: RITUXIMAB
     Dosage: FREQUENCY TEXT:DAY 1,15
     Route: 042
     Dates: start: 20180823
  23. ACETAMINOPHEN [Concomitant]
     Active Substance: ACETAMINOPHEN
     Route: 048
     Dates: start: 20180823
  24. DIPHENHYDRAMINE [Concomitant]
     Active Substance: DIPHENHYDRAMINE
     Route: 048
     Dates: start: 20180823
  25. METHYLPREDNISOLONE [Concomitant]
     Active Substance: METHYLPREDNISOLONE
     Route: 042
     Dates: start: 20180823
  26. METHOTREXATE [Concomitant]
     Active Substance: METHOTREXATE
  27. COUMADIN [Concomitant]
     Active Substance: WARFARIN SODIUM
  28. PROLIA [Concomitant]
     Active Substance: DENOSUMAB
  29. OXAZEPAM [Concomitant]
     Active Substance: OXAZEPAM
  30. IRBESARTAN [Concomitant]
     Active Substance: IRBESARTAN
  31. FUROSEMIDE [Concomitant]
     Active Substance: FUROSEMIDE
  32. FOLIC ACID [Concomitant]
     Active Substance: FOLIC ACID
  33. ESTRACE [Concomitant]
     Active Substance: ESTRADIOL
  34. METOCLOPRAMIDE [Concomitant]
     Active Substance: METOCLOPRAMIDE
  35. DEXILANT [Concomitant]
     Active Substance: DEXLANSOPRAZOLE
  36. WELLBUTRIN [Concomitant]
     Active Substance: BUPROPION HYDROCHLORIDE
  37. LEFLUNOMIDE [Concomitant]
     Active Substance: LEFLUNOMIDE

REACTIONS (7)
  - C-reactive protein increased [Unknown]
  - Red blood cell sedimentation rate increased [Unknown]
  - Musculoskeletal stiffness [Unknown]
  - Pneumonia [Unknown]
  - Oedema peripheral [Unknown]
  - Interstitial lung disease [Unknown]
  - Back pain [Unknown]

NARRATIVE: CASE EVENT DATE: 20180904
